FAERS Safety Report 9298924 (Version 1)
Quarter: 2013Q2

REPORT INFORMATION
  Report Type: Spontaneous
  Country: US (occurrence: US)
  Receive Date: 20130520
  Receipt Date: 20130520
  Transmission Date: 20140414
  Serious: Yes (Other)
  Sender: FDA-Public Use
  Company Number: US-SANOFI-AVENTIS-2012SA076242

PATIENT
  Age: 50 Year
  Sex: Female

DRUGS (5)
  1. SOLOSTAR [Suspect]
  2. SOLOSTAR [Suspect]
  3. LANTUS SOLOSTAR [Suspect]
     Dosage: DAILY DOSE RANGE 32-42 UNITS DEPENDING UPON BLOOD SUGAR
     Route: 058
  4. APIDRA SOLOSTAR [Suspect]
     Dosage: SLIDING SCALE UP TO 10 UNITS DEPENDING ON BLOOD SUGAR
     Route: 058
  5. WELLBUTRIN [Concomitant]
     Route: 065

REACTIONS (2)
  - Hypoglycaemia [Unknown]
  - Wrong drug administered [Unknown]
